FAERS Safety Report 19653820 (Version 1)
Quarter: 2021Q3

REPORT INFORMATION
  Report Type: Spontaneous
  Country: CH (occurrence: CH)
  Receive Date: 20210803
  Receipt Date: 20210803
  Transmission Date: 20211014
  Serious: Yes (Other)
  Sender: FDA-Public Use
  Company Number: CH-TEVA-2021-CH-1937657

PATIENT
  Age: 47 Year
  Sex: Male

DRUGS (5)
  1. MADOPAR [Concomitant]
     Active Substance: BENSERAZIDE HYDROCHLORIDE\LEVODOPA
     Dosage: 300 MILLIGRAM DAILY; MADOPAR  FROM 02.28.2019 INCREASE TO 100MG 1?1?1
     Route: 048
     Dates: start: 20190228
  2. SIFROL ER [Suspect]
     Active Substance: PRAMIPEXOLE
     Indication: PARKINSONISM
     Dosage: SIFROL  ER (PRAMIPEXOLE) FROM 1.5MG / D PER OS FROM 05.01.2019 TO 28.02.2019, 1.5 MG
     Route: 048
     Dates: start: 20190101, end: 20190228
  3. SIFROL ER [Suspect]
     Active Substance: PRAMIPEXOLE
     Indication: PARKINSONISM
     Dosage: SIFROL  ER (PRAMIPEXOLE) 2.25MG / D PER OS FROM MAY 28TH, 2018 TO JANUARY 4TH, 2019, 2.25 MG
     Route: 048
     Dates: start: 20180528, end: 20190104
  4. AZILECT [Suspect]
     Active Substance: RASAGILINE MESYLATE
     Indication: PARKINSONISM
     Dosage: AZILECT  (RASAGILIN) 1 MG/D PER OS VOM 28.05.2018 BIS 28.02.2019, 1 MG
     Route: 048
     Dates: start: 20180528, end: 20190228
  5. MADOPAR [Concomitant]
     Active Substance: BENSERAZIDE HYDROCHLORIDE\LEVODOPA
     Dosage: 187.5 MILLIGRAM DAILY; AB 05.01.2019: MADOPAR  62.5MG CAPSULES(LEVODOPA 50MG, BENSERAZIDE 12.5MG) 1?
     Route: 048
     Dates: start: 20190105, end: 20190227

REACTIONS (1)
  - Impulse-control disorder [Recovering/Resolving]

NARRATIVE: CASE EVENT DATE: 20190104
